FAERS Safety Report 4776956-4 (Version None)
Quarter: 2005Q3

REPORT INFORMATION
  Report Type: 
  Country: None (occurrence: None)
  Receive Date: 20050921
  Receipt Date: 20050908
  Transmission Date: 20060218
  Serious: Yes (Other)
  Sender: FDA-Public Use
  Company Number: 217652

PATIENT

DRUGS (1)
  1. XOLAIR [Suspect]
     Dates: start: 20050811

REACTIONS (1)
  - CEREBROVASCULAR ACCIDENT [None]
